FAERS Safety Report 7649776-0 (Version None)
Quarter: 2011Q3

REPORT INFORMATION
  Report Type: 
  Country: None (occurrence: None)
  Receive Date: 20110727
  Receipt Date: 20110715
  Transmission Date: 20111222
  Serious: Yes (Hospitalization)
  Sender: FDA-Public Use
  Company Number: UTC-008613

PATIENT
  Age: 61 Year
  Sex: Male
  Weight: 81.6 kg

DRUGS (5)
  1. REVATIO [Concomitant]
  2. COUMADIN [Concomitant]
  3. REMODULIN [Suspect]
     Indication: PULMONARY ARTERIAL HYPERTENSION
     Dosage: 28.8 UG/KG (0.02 UG/KG,1 IN 1 MIN),SUBCUTANEOUS
     Route: 058
     Dates: start: 20100416
  4. LETAIRIS [Concomitant]
  5. DIURETICS (DIURETICS) [Concomitant]

REACTIONS (5)
  - EYE INFECTION [None]
  - SINUSITIS [None]
  - INFUSION SITE REACTION [None]
  - INFUSION SITE INFECTION [None]
  - HAEMORRHAGE [None]
